FAERS Safety Report 8078682-5 (Version None)
Quarter: 2012Q1

REPORT INFORMATION
  Report Type: 
  Country: None (occurrence: None)
  Receive Date: 20120124
  Receipt Date: 20111221
  Transmission Date: 20120608
  Serious: Yes (Hospitalization)
  Sender: FDA-Public Use
  Company Number: 216080

PATIENT
  Age: 58 Year
  Sex: Male

DRUGS (1)
  1. INNOHEP [Suspect]
     Indication: THROMBOSIS IN DEVICE
     Dosage: 4500 IU

REACTIONS (2)
  - FISTULA [None]
  - THROMBOSIS [None]
